FAERS Safety Report 19968657 (Version 1)
Quarter: 2021Q4

REPORT INFORMATION
  Report Type: Spontaneous
  Country: US (occurrence: US)
  Receive Date: 20211019
  Receipt Date: 20211019
  Transmission Date: 20220303
  Serious: Yes (Hospitalization)
  Sender: FDA-Public Use
  Company Number: US-JNJFOC-20211011348

PATIENT
  Age: 23 Year
  Sex: Male
  Weight: 83 kg

DRUGS (2)
  1. TYLENOL PM [Suspect]
     Active Substance: ACETAMINOPHEN\DIPHENHYDRAMINE
     Indication: Suicide attempt
     Dosage: (ACETAMINOPHEN 500MG/ DIPHENHYDRAMINE HYDROCHLORIDE 25 MG) WITH ACETAMINOPHEN DOSE OF 45000 MG ONCE
     Route: 048
     Dates: start: 20030120, end: 20030120
  2. BENADRYL [Suspect]
     Active Substance: DIPHENHYDRAMINE HYDROCHLORIDE
     Indication: Suicide attempt
     Dosage: (DIPHENHYDRAMINE) 500 MG ONCE
     Route: 048
     Dates: start: 20030120, end: 20030120

REACTIONS (5)
  - Suicide attempt [Recovering/Resolving]
  - Pleural effusion [Recovering/Resolving]
  - Acute hepatic failure [Recovering/Resolving]
  - Acute kidney injury [Recovering/Resolving]
  - Intentional overdose [Recovering/Resolving]
